FAERS Safety Report 25746764 (Version 1)
Quarter: 2025Q3

REPORT INFORMATION
  Report Type: Report from Study
  Country: US (occurrence: US)
  Receive Date: 20250901
  Receipt Date: 20250901
  Transmission Date: 20251021
  Serious: Yes (Death, Hospitalization)
  Sender: ALEXION PHARMACEUTICALS
  Company Number: US-ASTRAZENECA-202508USA024171US

PATIENT
  Age: 73 Year
  Sex: Female

DRUGS (1)
  1. OLAPARIB [Suspect]
     Active Substance: OLAPARIB
     Indication: Illness
     Dosage: 300 MILLIGRAM, BID
     Dates: start: 202408

REACTIONS (1)
  - Death [Fatal]

NARRATIVE: CASE EVENT DATE: 20250731
